FAERS Safety Report 23087572 (Version 1)
Quarter: 2023Q4

REPORT INFORMATION
  Report Type: Spontaneous
  Country: CA (occurrence: CA)
  Receive Date: 20231020
  Receipt Date: 20231020
  Transmission Date: 20240110
  Serious: Yes (Life-Threatening, Hospitalization, Disabling)
  Sender: FDA-Public Use
  Company Number: CA-GLAXOSMITHKLINE-CA2023AMR142535

PATIENT

DRUGS (1)
  1. LAMOTRIGINE [Suspect]
     Active Substance: LAMOTRIGINE
     Indication: Affective disorder
     Dosage: UNK

REACTIONS (4)
  - Blood potassium decreased [Recovering/Resolving]
  - Disorientation [Recovering/Resolving]
  - Gait inability [Recovering/Resolving]
  - Renal disorder [Recovering/Resolving]
